FAERS Safety Report 10232635 (Version 4)
Quarter: 2014Q4

REPORT INFORMATION
  Report Type: Spontaneous
  Country: JP (occurrence: JP)
  Receive Date: 20140612
  Receipt Date: 20141105
  Transmission Date: 20150528
  Serious: Yes (Death, Life-Threatening, Other)
  Sender: FDA-Public Use
  Company Number: JP-PFIZER INC-2014158826

PATIENT
  Age: 74 Year
  Sex: Male

DRUGS (11)
  1. PREDONINE [Suspect]
     Active Substance: PREDNISOLONE\PREDNISOLONE ACETATE\PREDNISOLONE SODIUM SUCCINATE
     Indication: INTERSTITIAL LUNG DISEASE
     Dosage: 12.5 MG, 1X/DAY
     Route: 048
     Dates: start: 20140523
  2. LENDORMIN [Concomitant]
     Active Substance: BROTIZOLAM
     Indication: INSOMNIA
     Dosage: 0.25 MG, 1X/DAY
     Route: 048
     Dates: start: 20140523, end: 20140607
  3. MINOMYCIN [Concomitant]
     Active Substance: MINOCYCLINE HYDROCHLORIDE
     Indication: PROPHYLAXIS
     Dosage: 200 MG, 1X/DAY
     Route: 048
     Dates: start: 20140523, end: 20140607
  4. UNIPHYL LA TABLETS [Suspect]
     Active Substance: THEOPHYLLINE ANHYDROUS
     Indication: INTERSTITIAL LUNG DISEASE
     Dosage: 200 MG, 1X/DAY
     Route: 048
     Dates: start: 20140523
  5. URIEF [Concomitant]
     Active Substance: SILODOSIN
     Indication: BENIGN PROSTATIC HYPERPLASIA
     Dosage: 4 MG, 2X/DAY
     Route: 048
     Dates: start: 20140523, end: 20140607
  6. FLUITRAN [Concomitant]
     Active Substance: TRICHLORMETHIAZIDE
     Indication: HYPERTENSION
     Dosage: 2 MG, 1X/DAY
     Route: 048
     Dates: start: 20140523, end: 20140607
  7. ZYLORIC [Concomitant]
     Active Substance: ALLOPURINOL
     Indication: HYPERURICAEMIA
     Dosage: 100 MG, 1X/DAY
     Route: 048
     Dates: start: 20140523, end: 20140607
  8. REVATIO [Suspect]
     Active Substance: SILDENAFIL CITRATE
     Indication: PULMONARY ARTERIAL HYPERTENSION
     Dosage: 20 MG, 3X/DAY
     Route: 048
     Dates: start: 20140523
  9. TANATRIL [Concomitant]
     Active Substance: IMIDAPRIL
     Indication: HYPERTENSION
     Dosage: 5 MG, 1X/DAY
     Route: 048
     Dates: start: 20140523, end: 20140607
  10. ALDACTONE [Concomitant]
     Active Substance: SPIRONOLACTONE
     Indication: HYPERTENSION
     Dosage: 25 MG, 1X/DAY
     Route: 048
     Dates: start: 20140523, end: 20140607
  11. ZITHROMAC SR [Concomitant]
     Active Substance: AZITHROMYCIN DIHYDRATE
     Dosage: 2 G, WEEKLY
     Route: 048

REACTIONS (16)
  - Malaise [Unknown]
  - Dyspnoea [Unknown]
  - Face oedema [Unknown]
  - Diet refusal [Fatal]
  - Pulmonary hypertension [Fatal]
  - Cardio-respiratory arrest [Unknown]
  - Diarrhoea [Unknown]
  - Dyspnoea exertional [Unknown]
  - Decreased appetite [Unknown]
  - Interstitial lung disease [Fatal]
  - Dysphagia [Unknown]
  - Dysgeusia [Unknown]
  - Insomnia [Unknown]
  - Blood sodium decreased [Unknown]
  - Visual acuity reduced [Unknown]
  - Snoring [Unknown]

NARRATIVE: CASE EVENT DATE: 2014
